FAERS Safety Report 23829585 (Version 1)
Quarter: 2024Q2

REPORT INFORMATION
  Report Type: Spontaneous
  Country: RO (occurrence: RO)
  Receive Date: 20240508
  Receipt Date: 20240508
  Transmission Date: 20240716
  Serious: Yes (Other)
  Sender: FDA-Public Use
  Company Number: RO-AMGEN-ROUSP2024087680

PATIENT

DRUGS (2)
  1. KYPROLIS [Suspect]
     Active Substance: CARFILZOMIB
     Indication: Plasma cell myeloma
     Dosage: UNK
     Route: 065
  2. BORTEZOMIB [Suspect]
     Active Substance: BORTEZOMIB
     Indication: Plasma cell myeloma
     Dosage: UNK
     Route: 065

REACTIONS (8)
  - Plasma cell myeloma [Unknown]
  - Infection [Unknown]
  - Drug-induced liver injury [Unknown]
  - Cardiovascular disorder [Unknown]
  - Myocardial infarction [Unknown]
  - Hypertension [Unknown]
  - Atypical haemolytic uraemic syndrome [Unknown]
  - Therapy partial responder [Unknown]
